FAERS Safety Report 13514601 (Version 3)
Quarter: 2017Q3

REPORT INFORMATION
  Report Type: Report from Study
  Country: DE (occurrence: DE)
  Receive Date: 20170504
  Receipt Date: 20170723
  Transmission Date: 20171127
  Serious: Yes (Hospitalization, Other)
  Sender: FDA-Public Use
  Company Number: PHHY2017DE016657

PATIENT
  Sex: Female
  Weight: 69 kg

DRUGS (5)
  1. AFINITOR [Suspect]
     Active Substance: EVEROLIMUS
     Dosage: 10 MG, QD
     Route: 048
     Dates: start: 20141003, end: 20150319
  2. AFINITOR [Suspect]
     Active Substance: EVEROLIMUS
     Indication: BREAST CANCER METASTATIC
     Dosage: 5 MG, QD
     Route: 048
     Dates: start: 20140908, end: 20141002
  3. AFINITOR [Suspect]
     Active Substance: EVEROLIMUS
     Dosage: 10 MG, QD
     Route: 048
     Dates: start: 20150331
  4. EXEMESTAN STADA [Suspect]
     Active Substance: EXEMESTANE
     Indication: BREAST CANCER METASTATIC
     Dosage: 25 MG, QD
     Route: 048
     Dates: start: 20140908
  5. PANTOPRAZOLE [Concomitant]
     Active Substance: PANTOPRAZOLE
     Indication: PRODUCT USED FOR UNKNOWN INDICATION
     Dosage: 40 MG, QD
     Route: 065
     Dates: start: 20140416

REACTIONS (9)
  - Escherichia urinary tract infection [Recovered/Resolved]
  - Duodenitis [Recovered/Resolved]
  - Haemoglobin decreased [Unknown]
  - Pyrexia [Recovered/Resolved]
  - Diabetes mellitus inadequate control [Recovered/Resolved]
  - General physical health deterioration [Recovered/Resolved]
  - Dehydration [Recovered/Resolved]
  - Diabetes mellitus [Not Recovered/Not Resolved]
  - Large intestine polyp [Recovered/Resolved]

NARRATIVE: CASE EVENT DATE: 20160215
